FAERS Safety Report 23124344 (Version 3)
Quarter: 2024Q1

REPORT INFORMATION
  Report Type: Report from Study
  Country: KR (occurrence: KR)
  Receive Date: 20231030
  Receipt Date: 20240305
  Transmission Date: 20240409
  Serious: Yes (Hospitalization)
  Sender: FDA-Public Use
  Company Number: KR-ONO-2023KR026366

PATIENT
  Age: 68 Year
  Sex: Male
  Weight: 60.3 kg

DRUGS (2)
  1. BRAFTOVI [Suspect]
     Active Substance: ENCORAFENIB
     Indication: Colon cancer
     Dosage: 225 MG, 1X/DAY
     Route: 048
     Dates: start: 20220818, end: 20230921
  2. CETUXIMAB [Suspect]
     Active Substance: CETUXIMAB
     Indication: Colon cancer
     Dosage: 600 MG, QW
     Route: 042
     Dates: start: 20220818, end: 20230921

REACTIONS (4)
  - Blood creatinine increased [Not Recovered/Not Resolved]
  - Underdose [Unknown]
  - Dermatitis acneiform [Recovering/Resolving]
  - Dyspnoea [Not Recovered/Not Resolved]

NARRATIVE: CASE EVENT DATE: 20220818
